FAERS Safety Report 6077776-3 (Version None)
Quarter: 2009Q1

REPORT INFORMATION
  Report Type: 
  Country: None (occurrence: None)
  Receive Date: 20090213
  Receipt Date: 20090202
  Transmission Date: 20090719
  Serious: Yes (Other)
  Sender: FDA-Public Use
  Company Number: GB-PFIZER INC-2009168225

PATIENT

DRUGS (1)
  1. ALPRAZOLAM [Suspect]
     Indication: TINNITUS
     Dosage: UNK

REACTIONS (3)
  - DRUG INEFFECTIVE [None]
  - EYE HAEMORRHAGE [None]
  - MYOCARDIAL INFARCTION [None]
